FAERS Safety Report 21234072 (Version 2)
Quarter: 2022Q3

REPORT INFORMATION
  Report Type: Other
  Country: US (occurrence: None)
  Receive Date: 20220819
  Receipt Date: 20220916
  Transmission Date: 20221027
  Serious: Yes (Other)
  Sender: FDA-Public Use
  Company Number: US-ROCHE-3157841

PATIENT
  Sex: Female
  Weight: 86.260 kg

DRUGS (9)
  1. OCREVUS [Suspect]
     Active Substance: OCRELIZUMAB
     Indication: Relapsing-remitting multiple sclerosis
     Route: 042
     Dates: start: 20190801
  2. OCREVUS [Suspect]
     Active Substance: OCRELIZUMAB
     Dosage: DOT: 10-AUG-2022
     Route: 042
     Dates: start: 2020
  3. GABAPENTIN [Concomitant]
     Active Substance: GABAPENTIN
  4. METHOCARBAMOL [Concomitant]
     Active Substance: METHOCARBAMOL
  5. LACTULOSE [Concomitant]
     Active Substance: LACTULOSE
  6. POTASSIUM [Concomitant]
     Active Substance: POTASSIUM
  7. TYLENOL ARTHRITIS PAIN [Concomitant]
     Active Substance: ACETAMINOPHEN
  8. ESOMEPRAZOLE MAGNESIUM [Concomitant]
     Active Substance: ESOMEPRAZOLE MAGNESIUM
  9. XANAX [Concomitant]
     Active Substance: ALPRAZOLAM

REACTIONS (3)
  - Cholecystitis [Recovered/Resolved]
  - Cholelithiasis [Recovered/Resolved]
  - Blood potassium decreased [Unknown]

NARRATIVE: CASE EVENT DATE: 20210101
